FAERS Safety Report 22324801 (Version 2)
Quarter: 2023Q2

REPORT INFORMATION
  Report Type: Report from Study
  Country: US (occurrence: US)
  Receive Date: 20230516
  Receipt Date: 20230601
  Transmission Date: 20230721
  Serious: Yes (Hospitalization)
  Sender: FDA-Public Use
  Company Number: US-PHARMING-PHAUS2023000355

PATIENT

DRUGS (1)
  1. RUCONEST [Suspect]
     Active Substance: HUMAN C1-ESTERASE INHIBITOR
     Indication: Product used for unknown indication
     Dosage: 4200 IU, AS NEEDED
     Route: 042
     Dates: start: 2020

REACTIONS (2)
  - Dyspnoea [Recovered/Resolved]
  - Nervousness [Recovered/Resolved]
